FAERS Safety Report 9004007 (Version 2)
Quarter: 2013Q1

REPORT INFORMATION
  Report Type: Report from Study
  Country: BR (occurrence: BR)
  Receive Date: 20130108
  Receipt Date: 20130312
  Transmission Date: 20140127
  Serious: Yes (Other)
  Sender: FDA-Public Use
  Company Number: BR-ABBOTT-13P-020-1031592-00

PATIENT
  Sex: Female
  Weight: 50 kg

DRUGS (5)
  1. HUMIRA [Suspect]
     Indication: CROHN^S DISEASE
     Route: 058
     Dates: start: 20110501
  2. HUMIRA [Suspect]
     Route: 058
  3. HUMIRA [Suspect]
     Route: 058
  4. AZATHIOPRINE [Concomitant]
     Indication: IMMUNE SYSTEM DISORDER
     Dates: start: 201210
  5. FOLIC ACID [Concomitant]
     Indication: ANAEMIA
     Dates: start: 201210

REACTIONS (2)
  - Hypoacusis [Not Recovered/Not Resolved]
  - Weight increased [Unknown]
